FAERS Safety Report 15186002 (Version 1)
Quarter: 2018Q3

REPORT INFORMATION
  Report Type: Report from Study
  Country: US (occurrence: US)
  Receive Date: 20180723
  Receipt Date: 20180723
  Transmission Date: 20181010
  Serious: No
  Sender: FDA-Public Use
  Company Number: US-EXELIXIS-CABO-18011964

PATIENT
  Sex: Male

DRUGS (4)
  1. ACID CONTROL [Concomitant]
     Active Substance: FAMOTIDINE
  2. CABOMETYX [Suspect]
     Active Substance: CABOZANTINIB S-MALATE
     Indication: RENAL NEOPLASM
     Dosage: 40 MG, QD
     Route: 048
     Dates: start: 20171216
  3. TYLENOL WITH CODEINE [Concomitant]
     Active Substance: ACETAMINOPHEN\CODEINE PHOSPHATE
  4. IRON [Concomitant]
     Active Substance: IRON

REACTIONS (3)
  - Fatigue [Unknown]
  - Blister [Recovered/Resolved]
  - Dizziness [Unknown]
